FAERS Safety Report 5954022-X (Version None)
Quarter: 2008Q4

REPORT INFORMATION
  Report Type: 
  Country: None (occurrence: None)
  Receive Date: 20081114
  Receipt Date: 20081106
  Transmission Date: 20090506
  Serious: Yes (Hospitalization)
  Sender: FDA-Public Use
  Company Number: US-ABBOTT-08P-163-0484994-00

PATIENT
  Sex: Male
  Weight: 91.254 kg

DRUGS (6)
  1. HUMIRA [Suspect]
     Indication: PSORIASIS
     Route: 058
     Dates: start: 20060901, end: 20081007
  2. RETINOIDS FOR TREATMENT OF PSORIASIS [Concomitant]
     Indication: PSORIASIS
     Route: 061
  3. STEROID [Concomitant]
     Indication: PSORIASIS
     Route: 061
  4. CALCIPOTRIENE [Concomitant]
     Indication: PSORIASIS
     Route: 061
  5. TACROLIMUS [Concomitant]
     Indication: PSORIASIS
     Route: 061
  6. ATOMOXETINE HCL [Concomitant]
     Indication: ATTENTION DEFICIT/HYPERACTIVITY DISORDER
     Route: 048

REACTIONS (8)
  - COUGH [None]
  - LYMPHADENOPATHY [None]
  - MYCOBACTERIUM AVIUM COMPLEX INFECTION [None]
  - PNEUMONIA [None]
  - PYREXIA [None]
  - SINUSITIS [None]
  - UPPER RESPIRATORY TRACT INFECTION [None]
  - WEIGHT DECREASED [None]
